FAERS Safety Report 8099406-1 (Version None)
Quarter: 2012Q1

REPORT INFORMATION
  Report Type: 
  Country: None (occurrence: None)
  Receive Date: 20120126
  Receipt Date: 20120116
  Transmission Date: 20120608
  Serious: Yes (Other)
  Sender: FDA-Public Use
  Company Number: 1000023738

PATIENT
  Age: 85 Year
  Sex: Female

DRUGS (6)
  1. ARICEPT [Concomitant]
  2. MEMANTINE HYDROCHLORIDE [Suspect]
     Indication: DEMENTIA ALZHEIMER'S TYPE
     Dosage: 5 MG, (5 MG, 1 IN 1 D), ORAL; 10 MG (10 MG, 1 IN 1 D), ORAL; 15 MG (15 MG, 1 IN 1D), ORAL
     Route: 048
     Dates: start: 20110613, end: 20110101
  3. MEMANTINE HYDROCHLORIDE [Suspect]
     Indication: DEMENTIA ALZHEIMER'S TYPE
     Dosage: 5 MG, (5 MG, 1 IN 1 D), ORAL; 10 MG (10 MG, 1 IN 1 D), ORAL; 15 MG (15 MG, 1 IN 1D), ORAL
     Route: 048
     Dates: start: 20110101, end: 20110101
  4. MEMANTINE HYDROCHLORIDE [Suspect]
     Indication: DEMENTIA ALZHEIMER'S TYPE
     Dosage: 5 MG, (5 MG, 1 IN 1 D), ORAL; 10 MG (10 MG, 1 IN 1 D), ORAL; 15 MG (15 MG, 1 IN 1D), ORAL
     Route: 048
     Dates: start: 20110101, end: 20110101
  5. MEMANTINE HYDROCHLORIDE [Suspect]
     Indication: DEMENTIA ALZHEIMER'S TYPE
     Dosage: 20 MG (20 MG, 1 IN 1 D), ORAL
     Route: 048
     Dates: start: 20110101, end: 20110822
  6. BLOPRESS (CANDESARTAN CILEXTETIL) (CANDESARTAN CILEXETIL) [Concomitant]

REACTIONS (4)
  - DIZZINESS [None]
  - SOMNOLENCE [None]
  - MENTAL IMPAIRMENT [None]
  - CONSTIPATION [None]
